FAERS Safety Report 7573426-5 (Version None)
Quarter: 2011Q2

REPORT INFORMATION
  Report Type: 
  Country: None (occurrence: None)
  Receive Date: 20110627
  Receipt Date: 20110615
  Transmission Date: 20111010
  Serious: Yes (Other)
  Sender: FDA-Public Use
  Company Number: CA-AMGEN-CANSP2011025475

PATIENT
  Age: 45 Year
  Sex: Female
  Weight: 102.1 kg

DRUGS (10)
  1. ATROVENT [Concomitant]
     Dosage: UNK UNK, PRN
  2. ENBREL [Suspect]
     Indication: PSORIASIS
     Dosage: 50 MG, QWK
     Dates: start: 20110504, end: 20110525
  3. GLICLAZIDE [Concomitant]
     Dosage: 120 MG, QD
  4. AMLODIPINE [Concomitant]
     Dosage: 5 UNK, UNK
  5. ESTROGEL [Concomitant]
     Dosage: UNK G, QD
  6. AVAPRO [Concomitant]
     Dosage: 300 MG, QD
  7. LIPITOR [Concomitant]
     Dosage: 20 MG, QD
  8. METFORMIN HCL [Concomitant]
     Dosage: 2000 MG, UNK
  9. HYDROCHLOROTHIAZIDE [Concomitant]
     Dosage: 25 MG, QD
  10. VENTOLIN [Concomitant]
     Dosage: UNK UNK, PRN

REACTIONS (9)
  - ABDOMINAL PAIN [None]
  - BLOOD GLUCOSE INCREASED [None]
  - MALAISE [None]
  - FLATULENCE [None]
  - CONSTIPATION [None]
  - ABDOMINAL DISTENSION [None]
  - DIARRHOEA [None]
  - CROHN'S DISEASE [None]
  - BURNING SENSATION [None]
